FAERS Safety Report 9468904 (Version 1)
Quarter: 2013Q3

REPORT INFORMATION
  Report Type: Spontaneous
  Country: DE (occurrence: DE)
  Receive Date: 20130821
  Receipt Date: 20130821
  Transmission Date: 20140515
  Serious: Yes (Other)
  Sender: FDA-Public Use
  Company Number: DE-MYLANLABS-2013S1017751

PATIENT
  Age: 1 Day
  Sex: Male
  Weight: 3.66 kg

DRUGS (1)
  1. METFORMIN [Suspect]
     Route: 064

REACTIONS (2)
  - Polycythaemia [Recovered/Resolved]
  - Exposure during pregnancy [Recovered/Resolved]
